FAERS Safety Report 4459760-6 (Version None)
Quarter: 2004Q3

REPORT INFORMATION
  Report Type: 
  Country: None (occurrence: None)
  Receive Date: 20040928
  Receipt Date: 20040114
  Transmission Date: 20050211
  Serious: No
  Sender: FDA-Public Use
  Company Number: US-BRISTOL-MYERS SQUIBB COMPANY-12478004

PATIENT
  Age: 39 Year
  Sex: Female
  Weight: 59 kg

DRUGS (3)
  1. KENALOG-40 [Suspect]
     Indication: HEADACHE
     Route: 030
     Dates: start: 20031103, end: 20031103
  2. KENALOG-40 [Suspect]
     Indication: SINUSITIS
     Route: 030
     Dates: start: 20031103, end: 20031103
  3. KENALOG-40 [Suspect]
     Indication: RHINITIS
     Route: 030
     Dates: start: 20031103, end: 20031103

REACTIONS (1)
  - INJECTION SITE ATROPHY [None]
